FAERS Safety Report 7983571-8 (Version None)
Quarter: 2011Q4

REPORT INFORMATION
  Report Type: 
  Country: None (occurrence: None)
  Receive Date: 20111215
  Receipt Date: 20111207
  Transmission Date: 20120403
  Serious: Yes (Other)
  Sender: FDA-Public Use
  Company Number: PHHY2011DE107433

PATIENT

DRUGS (1)
  1. GLEEVEC [Suspect]
     Dosage: 400 MG, DAILY
     Route: 048
     Dates: start: 20070301

REACTIONS (6)
  - COUGH [None]
  - HYPOXIA [None]
  - DYSPNOEA [None]
  - TACHYPNOEA [None]
  - HYPOKALAEMIA [None]
  - RESPIRATORY FAILURE [None]
